FAERS Safety Report 9414647 (Version 1)
Quarter: 2013Q3

REPORT INFORMATION
  Report Type: Report from Study
  Country: IT (occurrence: IT)
  Receive Date: 20130723
  Receipt Date: 20130723
  Transmission Date: 20140515
  Serious: Yes (Other)
  Sender: FDA-Public Use
  Company Number: IT-PFIZER INC-2013212100

PATIENT
  Age: 14 Month
  Sex: Male

DRUGS (1)
  1. CARBOPLATIN [Suspect]
     Indication: GLIOMA
     Dosage: 61 MG/KG, CUMULATIVE DOSE)

REACTIONS (2)
  - Hypersensitivity [Unknown]
  - Inappropriate antidiuretic hormone secretion [Unknown]
